FAERS Safety Report 12506039 (Version 1)
Quarter: 2016Q2

REPORT INFORMATION
  Report Type: Spontaneous
  Country: GB (occurrence: GB)
  Receive Date: 20160628
  Receipt Date: 20160628
  Transmission Date: 20160815
  Serious: Yes (Hospitalization)
  Sender: FDA-Public Use
  Company Number: GB-MYLANLABS-2016M1025884

PATIENT

DRUGS (11)
  1. INDAPAMIDE MYLAN [Suspect]
     Active Substance: INDAPAMIDE
     Dosage: 1.5 MG, QD
     Route: 048
     Dates: end: 20160608
  2. BETAHISTINE [Concomitant]
     Active Substance: BETAHISTINE
     Dosage: UNK
  3. MOVICOL [Concomitant]
     Active Substance: POLYETHYLENE GLYCOL 3350\POTASSIUM CHLORIDE\SODIUM BICARBONATE\SODIUM CHLORIDE
     Dosage: UNK
  4. ISOSORBIDE. [Concomitant]
     Active Substance: ISOSORBIDE
     Dosage: UNK
  5. RIVAROXABAN [Concomitant]
     Active Substance: RIVAROXABAN
     Dosage: UNK
  6. RANITIDINE. [Concomitant]
     Active Substance: RANITIDINE
     Dosage: UNK
  7. MOVELAT                            /00479601/ [Concomitant]
     Dosage: UNK
  8. ALENDRONATE [Concomitant]
     Active Substance: ALENDRONATE SODIUM
     Dosage: UNK
  9. ATORVASTATIN [Concomitant]
     Active Substance: ATORVASTATIN
     Dosage: UNK
  10. METOCLOPRAMIDE. [Concomitant]
     Active Substance: METOCLOPRAMIDE
     Dosage: UNK
  11. FENTANYL. [Concomitant]
     Active Substance: FENTANYL
     Dosage: UNK

REACTIONS (4)
  - Fall [Unknown]
  - Vision blurred [Unknown]
  - Hypercalcaemia [Recovering/Resolving]
  - Malaise [Unknown]
